FAERS Safety Report 7930590-3 (Version None)
Quarter: 2011Q4

REPORT INFORMATION
  Report Type: 
  Country: None (occurrence: None)
  Receive Date: 20111121
  Receipt Date: 20111116
  Transmission Date: 20120403
  Serious: Yes (Death, Hospitalization)
  Sender: FDA-Public Use
  Company Number: IT-ROCHE-1014140

PATIENT
  Sex: Male

DRUGS (6)
  1. DIAZEPAM [Concomitant]
     Indication: DEPRESSION
     Route: 048
  2. ZYPREXA [Concomitant]
     Indication: DYSTHYMIC DISORDER
     Route: 048
  3. ALCOHOL [Concomitant]
  4. DIAZEPAM [Suspect]
     Indication: PRODUCT USED FOR UNKNOWN INDICATION
     Route: 048
     Dates: start: 20110306, end: 20110306
  5. CYMBALTA [Concomitant]
     Indication: DEPRESSION
     Route: 048
  6. CLONAZEPAM [Suspect]
     Indication: PRODUCT USED FOR UNKNOWN INDICATION
     Route: 048
     Dates: start: 20110306, end: 20110306

REACTIONS (2)
  - VOMITING [None]
  - BRADYPHRENIA [None]
